FAERS Safety Report 13608990 (Version 2)
Quarter: 2017Q4

REPORT INFORMATION
  Report Type: Report from Study
  Country: IL (occurrence: IL)
  Receive Date: 20170602
  Receipt Date: 20171011
  Transmission Date: 20180320
  Serious: Yes (Other)
  Sender: FDA-Public Use
  Company Number: IL-BAYER-2017-099398

PATIENT
  Age: 63 Year
  Sex: Female

DRUGS (8)
  1. CALCIUM [Concomitant]
     Active Substance: CALCIUM
     Dosage: UNK
  2. IPRIFLAVONE [Concomitant]
     Active Substance: IPRIFLAVONE
     Dosage: UNK
  3. BETAFERON [Suspect]
     Active Substance: INTERFERON BETA-1B
     Indication: MULTIPLE SCLEROSIS
     Dosage: UNK
     Dates: start: 20140311
  4. VITAMIN D [Concomitant]
     Active Substance: CHOLECALCIFEROL
     Dosage: UNK
  5. VITAMIN B12 [Concomitant]
     Active Substance: CYANOCOBALAMIN
     Dosage: UNK
  6. CIPRALEX [Concomitant]
     Active Substance: ESCITALOPRAM OXALATE
     Dosage: UNK
  7. IRON [Concomitant]
     Active Substance: IRON
     Dosage: UNK
  8. PROVIGIL [Concomitant]
     Active Substance: MODAFINIL
     Dosage: UNK

REACTIONS (8)
  - Rectal haemorrhage [Not Recovered/Not Resolved]
  - Presyncope [Recovered/Resolved]
  - Iron deficiency anaemia [None]
  - Dysstasia [Recovered/Resolved]
  - Depressed level of consciousness [Recovered/Resolved]
  - Asthenia [Recovered/Resolved]
  - Haemorrhoidal haemorrhage [Recovered/Resolved]
  - Haemoglobin decreased [None]

NARRATIVE: CASE EVENT DATE: 201709
